FAERS Safety Report 10201750 (Version 3)
Quarter: 2014Q2

REPORT INFORMATION
  Report Type: Report from Study
  Country: US (occurrence: US)
  Receive Date: 20140528
  Receipt Date: 20140619
  Transmission Date: 20141212
  Serious: Yes (Other)
  Sender: FDA-Public Use
  Company Number: US-SA-2014SA065737

PATIENT
  Sex: Female

DRUGS (2)
  1. LANTUS [Suspect]
     Indication: DIABETES MELLITUS
     Dosage: FORM: VIAL DOSE:50 UNIT(S)
     Route: 065
  2. HUMALOG [Concomitant]

REACTIONS (2)
  - Pain [Unknown]
  - Blindness [Unknown]
